FAERS Safety Report 8840716 (Version 1)
Quarter: 2012Q4

REPORT INFORMATION
  Report Type: 
  Country: US (occurrence: US)
  Receive Date: 20121015
  Receipt Date: 20121015
  Transmission Date: 20130627
  Serious: Yes (Other)
  Sender: FDA-Public Use
  Company Number: US-ROCHE-GNE240330

PATIENT
  Age: 3 Year
  Sex: Male
  Weight: 13.62 kg

DRUGS (2)
  1. NUTROPIN AQ [Suspect]
     Indication: GROWTH HORMONE DEFICIENCY
     Dosage: 0.6 mg, qd
     Route: 058
     Dates: start: 20070412
  2. NUTROPIN AQ [Suspect]
     Indication: DWARFISM

REACTIONS (4)
  - Ear infection [Recovered/Resolved]
  - Vomiting [Unknown]
  - Headache [Recovering/Resolving]
  - Pyrexia [Unknown]
